FAERS Safety Report 13658679 (Version 1)
Quarter: 2017Q2

REPORT INFORMATION
  Report Type: Spontaneous
  Country: US (occurrence: US)
  Receive Date: 20170615
  Receipt Date: 20170615
  Transmission Date: 20170830
  Serious: Yes (Hospitalization)
  Sender: FDA-Public Use
  Company Number: None

PATIENT
  Age: 73 Year
  Sex: Male
  Weight: 109.3 kg

DRUGS (1)
  1. CASODEX [Suspect]
     Active Substance: BICALUTAMIDE
     Dates: end: 20170610

REACTIONS (4)
  - Osteomyelitis [None]
  - Ear pain [None]
  - Otorrhoea [None]
  - Pseudomonas test positive [None]

NARRATIVE: CASE EVENT DATE: 20170610
